FAERS Safety Report 24080793 (Version 4)
Quarter: 2025Q2

REPORT INFORMATION
  Report Type: Spontaneous
  Country: US (occurrence: US)
  Receive Date: 20240711
  Receipt Date: 20250415
  Transmission Date: 20250716
  Serious: No
  Sender: CALLIDITAS THERAPEUTICS
  Company Number: US-Calliditas-2024CAL01235

PATIENT
  Age: 29 Year
  Sex: Female
  Weight: 39.9 kg

DRUGS (1)
  1. TARPEYO [Suspect]
     Active Substance: BUDESONIDE
     Indication: IgA nephropathy
     Route: 048
     Dates: start: 20240626, end: 20250324

REACTIONS (11)
  - Myalgia [Unknown]
  - Musculoskeletal stiffness [Unknown]
  - Increased appetite [Unknown]
  - Prescribed underdose [Unknown]
  - Energy increased [Unknown]
  - Insomnia [Unknown]
  - Muscle fatigue [Unknown]
  - Swelling face [Recovering/Resolving]
  - Peripheral swelling [Recovering/Resolving]
  - Blood pressure increased [Recovering/Resolving]
  - Visual impairment [Recovering/Resolving]

NARRATIVE: CASE EVENT DATE: 20240701
